FAERS Safety Report 5575184-2 (Version None)
Quarter: 2007Q4

REPORT INFORMATION
  Report Type: 
  Country: None (occurrence: None)
  Receive Date: 20071130
  Receipt Date: 20070727
  Transmission Date: 20080405
  Serious: No
  Sender: FDA-Public Use
  Company Number: US200708001345

PATIENT
  Age: 62 Year
  Sex: Male

DRUGS (19)
  1. BYETTA [Suspect]
     Indication: TYPE 2 DIABETES MELLITUS
     Dosage: 5 UG, 2/D, SUBCUTANEOUS ; 10 UG, 2/D, SUBCUTANEOUS ; 10 UG, 2/D, SUBCUTANEOUS
     Route: 058
     Dates: start: 20060509, end: 20060521
  2. BYETTA [Suspect]
     Indication: TYPE 2 DIABETES MELLITUS
     Dosage: 5 UG, 2/D, SUBCUTANEOUS ; 10 UG, 2/D, SUBCUTANEOUS ; 10 UG, 2/D, SUBCUTANEOUS
     Route: 058
     Dates: start: 20060517
  3. BYETTA [Suspect]
     Indication: TYPE 2 DIABETES MELLITUS
     Dosage: 5 UG, 2/D, SUBCUTANEOUS ; 10 UG, 2/D, SUBCUTANEOUS ; 10 UG, 2/D, SUBCUTANEOUS
     Route: 058
     Dates: start: 20060711
  4. GLIPIZIDE [Concomitant]
  5. ALLOPURINOL [Concomitant]
  6. ASPIRIN [Concomitant]
  7. FLONASE [Concomitant]
  8. COLACE (DOCUSATE SODIUM) [Concomitant]
  9. HYDRALAZINE HCL [Concomitant]
  10. DIGOXIN [Concomitant]
  11. LASIX [Concomitant]
  12. OXYGEN (OXYGEN) [Concomitant]
  13. POTASSIUM CHLORIDE [Concomitant]
  14. SPIRIVA [Concomitant]
  15. TOPROL-XL [Concomitant]
  16. UROXATRAL [Concomitant]
  17. ZETIA [Concomitant]
  18. ZOLOFT [Concomitant]
  19. ACIPHEX [Concomitant]

REACTIONS (5)
  - BLOOD GLUCOSE INCREASED [None]
  - DIARRHOEA [None]
  - NAUSEA [None]
  - PYREXIA [None]
  - STOMACH DISCOMFORT [None]
